FAERS Safety Report 18172363 (Version 5)
Quarter: 2021Q3

REPORT INFORMATION
  Report Type: Report from Study
  Country: US (occurrence: US)
  Receive Date: 20200820
  Receipt Date: 20210730
  Transmission Date: 20211014
  Serious: Yes (Other)
  Sender: FDA-Public Use
  Company Number: NVSC2020US229666

PATIENT
  Sex: Male

DRUGS (3)
  1. WARFARIN [Concomitant]
     Active Substance: WARFARIN
     Indication: PRODUCT USED FOR UNKNOWN INDICATION
     Dosage: UNK
     Route: 065
  2. ENTRESTO [Suspect]
     Active Substance: SACUBITRIL\VALSARTAN
     Indication: CARDIAC FAILURE
     Dosage: UNK UNK, BID
     Route: 048
     Dates: start: 20200724
  3. ENTRESTO [Suspect]
     Active Substance: SACUBITRIL\VALSARTAN
     Dosage: UNK UNK, BID (97/103 MG)
     Route: 048

REACTIONS (14)
  - Sinusitis [Unknown]
  - Dyspnoea [Unknown]
  - Weight fluctuation [Unknown]
  - Heart rate increased [Unknown]
  - Cough [Unknown]
  - Anxiety [Unknown]
  - Decreased activity [Unknown]
  - Claustrophobia [Unknown]
  - Peripheral swelling [Unknown]
  - Angina pectoris [Unknown]
  - Sneezing [Unknown]
  - Hypersensitivity [Unknown]
  - Stress [Unknown]
  - Fatigue [Unknown]
